FAERS Safety Report 9503790 (Version 1)
Quarter: 2013Q1

REPORT INFORMATION
  Report Type: Spontaneous
  Country: US (occurrence: None)
  Receive Date: 20130225
  Receipt Date: 20130225
  Transmission Date: 20140127
  Serious: No
  Sender: FDA-Public Use
  Company Number: 369890

PATIENT
  Sex: Female

DRUGS (2)
  1. VICTOZA (LIRAGLUTIDE) [Suspect]
     Dosage: UNK, SUBCUTANEOUS
     Route: 058
     Dates: end: 201205
  2. Z-PAK (AZITHROMYCIN) [Concomitant]

REACTIONS (1)
  - Rash generalised [None]
